FAERS Safety Report 19788660 (Version 2)
Quarter: 2021Q3

REPORT INFORMATION
  Report Type: Spontaneous
  Country: SE (occurrence: SE)
  Receive Date: 20210904
  Receipt Date: 20210923
  Transmission Date: 20211014
  Serious: Yes (Other)
  Sender: FDA-Public Use
  Company Number: SE-ROCHE-2903706

PATIENT
  Sex: Male

DRUGS (5)
  1. IKTORIVIL [Suspect]
     Active Substance: CLONAZEPAM
     Indication: SCHIZOPHRENIA
  2. ABILIFY MAINTENA [Suspect]
     Active Substance: ARIPIPRAZOLE
     Indication: SCHIZOPHRENIA
     Route: 065
  3. IKTORIVIL [Suspect]
     Active Substance: CLONAZEPAM
     Indication: AUTISM SPECTRUM DISORDER
     Dosage: HOSPITAL THOUGHT IT WAS A SIDE EFFECT OF ABILIFY MAINTENA. WE THOUGHT THAT HE OVERDOSED ON IKTORIVIL
     Route: 065
  4. CISORDINOL DEPOT [Concomitant]
     Active Substance: ZUCLOPENTHIXOL
     Indication: PRODUCT USED FOR UNKNOWN INDICATION
     Dosage: 200 MG / ML 1 ML EVERY 2V
     Route: 065
  5. ABILIFY MAINTENA [Suspect]
     Active Substance: ARIPIPRAZOLE
     Indication: AUTISM SPECTRUM DISORDER
     Dosage: UNK
     Route: 065
     Dates: start: 202003

REACTIONS (1)
  - Epilepsy [Unknown]
